FAERS Safety Report 24069166 (Version 1)
Quarter: 2024Q3

REPORT INFORMATION
  Report Type: Report from Study
  Country: DK (occurrence: DK)
  Receive Date: 20240710
  Receipt Date: 20240710
  Transmission Date: 20241017
  Serious: No
  Sender: ROCHE
  Company Number: DK-ROCHE-3168964

PATIENT
  Sex: Male

DRUGS (3)
  1. ALECTINIB [Suspect]
     Active Substance: ALECTINIB
     Indication: Non-small cell lung cancer
     Dosage: 450MG X2?LAST DOSE: 13/DEC/2022
     Route: 065
     Dates: start: 20220802, end: 202212
  2. PREDNISOLONE [Concomitant]
     Active Substance: PREDNISOLONE
  3. PANTOPRAZOLE [Concomitant]
     Active Substance: PANTOPRAZOLE

REACTIONS (3)
  - Temperature intolerance [Unknown]
  - Thermal burn [Unknown]
  - Food intolerance [Recovered/Resolved]
